FAERS Safety Report 6038585-4 (Version None)
Quarter: 2009Q1

REPORT INFORMATION
  Report Type: 
  Country: None (occurrence: None)
  Receive Date: 20090115
  Receipt Date: 20090108
  Transmission Date: 20090719
  Serious: Yes (Life-Threatening, Hospitalization)
  Sender: FDA-Public Use
  Company Number: A0756084A

PATIENT
  Age: 46 Year
  Sex: Male

DRUGS (5)
  1. ABACAVIR SULFATE/LAMIVUDINE [Suspect]
     Indication: HIV INFECTION
     Route: 048
  2. REYATAZ [Concomitant]
     Indication: HIV INFECTION
     Dosage: 400U PER DAY
     Route: 065
  3. NORVIR [Concomitant]
     Indication: HIV INFECTION
     Dosage: 100U PER DAY
     Route: 065
  4. PLAVIX [Concomitant]
     Route: 065
  5. COUMADIN [Concomitant]
     Route: 065

REACTIONS (1)
  - MYOCARDIAL INFARCTION [None]
